FAERS Safety Report 6248774-1 (Version None)
Quarter: 2009Q2

REPORT INFORMATION
  Report Type: 
  Country: None (occurrence: None)
  Receive Date: 20090625
  Receipt Date: 20090612
  Transmission Date: 20091009
  Serious: Yes (Death)
  Sender: FDA-Public Use
  Company Number: 1022556-2009-00042

PATIENT
  Age: 31 Year
  Sex: Female

DRUGS (1)
  1. UNISOM [Suspect]
     Indication: SLEEP DISORDER THERAPY
     Dates: start: 20060407

REACTIONS (1)
  - COMPLETED SUICIDE [None]
